FAERS Safety Report 6487980-8 (Version None)
Quarter: 2009Q4

REPORT INFORMATION
  Report Type: 
  Country: None (occurrence: None)
  Receive Date: 20091210
  Receipt Date: 20091130
  Transmission Date: 20100525
  Serious: Yes (Other)
  Sender: FDA-Public Use
  Company Number: PHHY2008FR32635

PATIENT
  Sex: Female
  Weight: 67 kg

DRUGS (5)
  1. ACLASTA [Suspect]
     Indication: OSTEOPOROSIS
     Dosage: UNK
     Dates: start: 20081106
  2. PLAVIX [Concomitant]
     Indication: CAROTID ARTERY STENT INSERTION
     Dosage: 1 DF DAILY
     Dates: start: 20050101
  3. AMLOR [Concomitant]
     Indication: HYPERTENSION
     Dosage: 10 MG/DAY
     Dates: start: 20050101
  4. TAHOR [Concomitant]
     Indication: CAROTID ARTERY STENT INSERTION
     Dosage: 10 MG/DAY
     Dates: start: 20060101
  5. KARDEGIC [Concomitant]
     Indication: CAROTID ARTERY STENT INSERTION
     Dosage: 75 MG/DAY
     Dates: start: 20050101

REACTIONS (15)
  - ABDOMINAL PAIN [None]
  - ARTHRALGIA [None]
  - BONE PAIN [None]
  - CHILLS [None]
  - DYSPHAGIA [None]
  - GAIT DISTURBANCE [None]
  - HEADACHE [None]
  - HYPOTENSION [None]
  - LOSS OF CONSCIOUSNESS [None]
  - MALAISE [None]
  - NAUSEA [None]
  - PAIN IN EXTREMITY [None]
  - PYREXIA [None]
  - SYNCOPE [None]
  - VOMITING [None]
